FAERS Safety Report 14854844 (Version 1)
Quarter: 2018Q2

REPORT INFORMATION
  Report Type: Spontaneous
  Country: US (occurrence: US)
  Receive Date: 20180507
  Receipt Date: 20180507
  Transmission Date: 20180711
  Serious: No
  Sender: FDA-Public Use
  Company Number: US-ROCHE-1907158

PATIENT
  Sex: Female
  Weight: 87.17 kg

DRUGS (4)
  1. SYNTHROID [Concomitant]
     Active Substance: LEVOTHYROXINE SODIUM
     Dosage: ONGOING: YES
     Route: 065
  2. BENZONATATE. [Concomitant]
     Active Substance: BENZONATATE
     Dosage: ONGOING: YES
     Route: 065
  3. ESBRIET [Suspect]
     Active Substance: PIRFENIDONE
     Indication: IDIOPATHIC PULMONARY FIBROSIS
     Dosage: ONGOING: NO
     Route: 065
     Dates: start: 201508, end: 201611
  4. ETHOPROPAZINE [Concomitant]
     Active Substance: ETHOPROPAZINE
     Dosage: ONGOING: YES
     Route: 065

REACTIONS (3)
  - Nausea [Recovered/Resolved]
  - Gastric disorder [Recovered/Resolved]
  - Decreased appetite [Recovered/Resolved]
